FAERS Safety Report 5205503-8 (Version None)
Quarter: 2007Q1

REPORT INFORMATION
  Report Type: 
  Country: None (occurrence: None)
  Receive Date: 20070109
  Receipt Date: 20061228
  Transmission Date: 20070707
  Serious: Yes (Hospitalization, Other)
  Sender: FDA-Public Use
  Company Number: 163-21880-06110991

PATIENT
  Age: 73 Year
  Sex: Male

DRUGS (8)
  1. REVLIMID [Suspect]
     Indication: MYELODYSPLASTIC SYNDROME
     Dosage: 2.5 MG, 1 IN 2 D, ORAL
     Route: 048
     Dates: start: 20060501, end: 20060901
  2. ZOLADEX [Concomitant]
  3. FLOMAX [Concomitant]
  4. LEVOTHYROXINE SODIUM [Concomitant]
  5. PRILOSEC [Concomitant]
  6. VALIUM [Concomitant]
  7. AMITRIPTYLINE HCL [Concomitant]
  8. ADVIL [Concomitant]

REACTIONS (9)
  - ABDOMINAL PAIN LOWER [None]
  - ACUTE LEUKAEMIA [None]
  - ARTHRITIS BACTERIAL [None]
  - ATRIAL FLUTTER [None]
  - CONDITION AGGRAVATED [None]
  - CONFUSIONAL STATE [None]
  - DIVERTICULITIS [None]
  - HEART RATE INCREASED [None]
  - PLATELET COUNT DECREASED [None]
